FAERS Safety Report 11372114 (Version 2)
Quarter: 2015Q3

REPORT INFORMATION
  Report Type: Report from Study
  Country: CH (occurrence: CH)
  Receive Date: 20150812
  Receipt Date: 20150817
  Transmission Date: 20151125
  Serious: Yes (Other)
  Sender: FDA-Public Use
  Company Number: CH-ABBVIE-15P-151-1441895-00

PATIENT
  Sex: Female

DRUGS (1)
  1. DUODOPA [Suspect]
     Active Substance: CARBIDOPA\LEVODOPA
     Indication: PARKINSON^S DISEASE
     Dosage: MD: 5ML, CD DAY: 3ML/H, CD NIGHT: 1.4ML/H,ED: 1.6ML
     Route: 050
     Dates: start: 201206

REACTIONS (4)
  - Device connection issue [Unknown]
  - Unintentional medical device removal [Unknown]
  - Diabetes mellitus [Unknown]
  - Device dislocation [Unknown]
